FAERS Safety Report 8568251 (Version 3)
Quarter: 2013Q2

REPORT INFORMATION
  Report Type: Report from Study
  Country: AU (occurrence: AU)
  Receive Date: 20120518
  Receipt Date: 20130422
  Transmission Date: 20140414
  Serious: Yes (Hospitalization, Disabling)
  Sender: FDA-Public Use
  Company Number: PHBS2002AU02040

PATIENT
  Age: 18 Year
  Sex: Male
  Weight: 89 kg

DRUGS (9)
  1. CLOZARIL [Suspect]
     Indication: SCHIZOAFFECTIVE DISORDER
     Dosage: 250 MG, QD
     Route: 048
     Dates: start: 20010809
  2. CLOZARIL [Suspect]
     Dosage: 200 MG, UNK
     Route: 048
  3. CLOZARIL [Suspect]
     Dosage: 175 MG, UNK
     Route: 048
  4. CLOZARIL [Suspect]
     Dosage: 150 UNK, UNK
     Route: 048
     Dates: start: 20010809, end: 20121219
  5. CLOZARIL [Suspect]
     Dosage: UNK UKN, UNK
     Route: 048
     Dates: start: 20130220
  6. CLOZARIL [Suspect]
     Dosage: 325 MG, UNK
     Dates: start: 20130411
  7. ATENOLOL [Concomitant]
     Dosage: 25 MG, QD
     Route: 048
     Dates: start: 200201
  8. CIPRAMIL [Concomitant]
     Dosage: 20 MG/DAY
  9. QUETIAPINE [Concomitant]
     Indication: SCHIZOPHRENIA
     Dosage: 300-900 MG AT NIGHT
     Route: 048
     Dates: start: 20121205

REACTIONS (4)
  - Psychotic disorder [Not Recovered/Not Resolved]
  - Sexual dysfunction [Recovered/Resolved]
  - Erectile dysfunction [Not Recovered/Not Resolved]
  - Sedation [Recovered/Resolved]
